FAERS Safety Report 17056407 (Version 1)
Quarter: 2019Q4

REPORT INFORMATION
  Report Type: Spontaneous
  Country: GB (occurrence: GB)
  Receive Date: 20191121
  Receipt Date: 20191121
  Transmission Date: 20200122
  Serious: Yes (Other)
  Sender: FDA-Public Use
  Company Number: GB-ACCORD-161272

PATIENT
  Age: 31 Year
  Sex: Male
  Weight: 106 kg

DRUGS (7)
  1. FOLIC ACID. [Concomitant]
     Active Substance: FOLIC ACID
     Dates: start: 20191001
  2. FLUOXETINE [Concomitant]
     Active Substance: FLUOXETINE HYDROCHLORIDE
     Indication: DEPRESSION
     Dosage: IN THE MORNING
     Dates: start: 20191018
  3. QVAR [Concomitant]
     Active Substance: BECLOMETHASONE DIPROPIONATE
     Route: 055
     Dates: start: 20190109
  4. SALAMOL [Concomitant]
     Active Substance: ALBUTEROL
     Dosage: ONE TO TWO DOSES AS NEEDED
     Route: 055
     Dates: start: 20190109
  5. SERTRALINE [Suspect]
     Active Substance: SERTRALINE HYDROCHLORIDE
     Indication: PRODUCT USED FOR UNKNOWN INDICATION
     Dates: start: 20191018
  6. DIAZEPAM. [Concomitant]
     Active Substance: DIAZEPAM
     Dosage: TO BE TAKEN ONLY WHEN NEEDED, UPTO 3...
     Dates: start: 20190918, end: 20190925
  7. SERTRALINE [Concomitant]
     Active Substance: SERTRALINE HYDROCHLORIDE
     Indication: DEPRESSION
     Dosage: IN THE MORNING
     Dates: start: 20191004

REACTIONS (2)
  - Urinary retention [Recovering/Resolving]
  - Dysuria [Unknown]

NARRATIVE: CASE EVENT DATE: 20191018
